FAERS Safety Report 25942014 (Version 1)
Quarter: 2025Q4

REPORT INFORMATION
  Report Type: Spontaneous
  Country: US (occurrence: US)
  Receive Date: 20251020
  Receipt Date: 20251020
  Transmission Date: 20260118
  Serious: No
  Sender: DR REDDYS
  Company Number: None

PATIENT
  Age: 68 Year
  Sex: Male

DRUGS (2)
  1. DOXYCYCLINE [Suspect]
     Active Substance: DOXYCYCLINE
     Indication: Brucellosis
     Dosage: COMPLETION OF 5 WEEKS OF THE 12-WEEK COURSE
  2. RIFAMPIN [Suspect]
     Active Substance: RIFAMPIN
     Indication: Brucellosis
     Dosage: COMPLETION OF 5 WEEKS OF THE 12-WEEK COURSE

REACTIONS (1)
  - Drug hypersensitivity [Unknown]
